FAERS Safety Report 4940487-9 (Version None)
Quarter: 2006Q1

REPORT INFORMATION
  Report Type: 
  Country: None (occurrence: None)
  Receive Date: 20060131
  Receipt Date: 20050930
  Transmission Date: 20060701
  Serious: No
  Sender: FDA-Public Use
  Company Number: 200517043US

PATIENT
  Age: 38 Year
  Sex: Female

DRUGS (3)
  1. KETEK [Suspect]
     Indication: BRONCHITIS
     Dosage: 400 MG PO
     Route: 048
     Dates: start: 20050919, end: 20050923
  2. ALBUTEROL [Concomitant]
  3. TRAMADOL HYDROCHLORIDE (ULTRAM) [Concomitant]

REACTIONS (4)
  - ANXIETY [None]
  - CHEST PAIN [None]
  - DIZZINESS [None]
  - DYSPNOEA [None]
